FAERS Safety Report 7039431-2 (Version None)
Quarter: 2010Q4

REPORT INFORMATION
  Report Type: 
  Country: None (occurrence: None)
  Receive Date: 20101012
  Receipt Date: 20100930
  Transmission Date: 20110411
  Serious: Yes (Death, Other)
  Sender: FDA-Public Use
  Company Number: JP-ROCHE-730198

PATIENT
  Sex: Male
  Weight: 42 kg

DRUGS (7)
  1. AVASTIN [Suspect]
     Indication: RECTAL CANCER METASTATIC
     Route: 041
     Dates: start: 20100906, end: 20100906
  2. XELODA [Suspect]
     Indication: RECTAL CANCER METASTATIC
     Route: 048
     Dates: start: 20100906, end: 20100919
  3. ELPLAT [Suspect]
     Indication: RECTAL CANCER METASTATIC
     Dosage: DOSAGE IS UNCERTAIN
     Route: 041
  4. ELPLAT [Suspect]
     Route: 041
     Dates: start: 20100906, end: 20100906
  5. SEROTONE [Concomitant]
     Route: 042
     Dates: start: 20100906, end: 20100906
  6. DECADRON [Concomitant]
     Route: 042
     Dates: start: 20100906, end: 20100906
  7. PYDOXAL [Concomitant]
     Route: 048
     Dates: start: 20100906, end: 20100924

REACTIONS (4)
  - ATRIAL THROMBOSIS [None]
  - DIARRHOEA [None]
  - PULMONARY EMBOLISM [None]
  - THROMBOSIS IN DEVICE [None]
